FAERS Safety Report 6501321-9 (Version None)
Quarter: 2009Q4

REPORT INFORMATION
  Report Type: 
  Country: None (occurrence: None)
  Receive Date: 20091215
  Receipt Date: 20091215
  Transmission Date: 20100525
  Serious: Yes (Other)
  Sender: FDA-Public Use
  Company Number: None

PATIENT
  Age: 49 Year
  Sex: Female
  Weight: 53.5244 kg

DRUGS (1)
  1. LEVULAN KERASTICK UNKOWN DUSA PHARM [Suspect]
     Indication: HYPERKERATOSIS
     Dosage: ONE APPLICATION ONCE TOP
     Route: 061
     Dates: start: 20081121, end: 20081121

REACTIONS (9)
  - EYELID DISORDER [None]
  - OEDEMA [None]
  - PAIN [None]
  - PROCEDURAL COMPLICATION [None]
  - SKIN DISORDER [None]
  - SKIN WRINKLING [None]
  - SWELLING FACE [None]
  - THERMAL BURN [None]
  - WRONG TECHNIQUE IN DRUG USAGE PROCESS [None]
